FAERS Safety Report 15095766 (Version 5)
Quarter: 2018Q4

REPORT INFORMATION
  Report Type: Report from Study
  Country: IT (occurrence: IT)
  Receive Date: 20180702
  Receipt Date: 20181004
  Transmission Date: 20190204
  Serious: Yes (Life-Threatening, Hospitalization)
  Sender: FDA-Public Use
  Company Number: IT-ROCHE-2130787

PATIENT
  Age: 59 Year
  Sex: Male
  Weight: 73 kg

DRUGS (17)
  1. ESOMEPRAZOLE. [Concomitant]
     Active Substance: ESOMEPRAZOLE MAGNESIUM
     Route: 048
     Dates: start: 20180614
  2. ESOMEPRAZOLE. [Concomitant]
     Active Substance: ESOMEPRAZOLE MAGNESIUM
     Indication: PROPHYLAXIS
     Route: 048
     Dates: end: 20180323
  3. DELTACORTENE [Concomitant]
     Active Substance: PREDNISONE
     Indication: MUSCULOSKELETAL PAIN
     Route: 048
     Dates: start: 20180413, end: 20180525
  4. PARACETAMOL [Concomitant]
     Active Substance: ACETAMINOPHEN
     Route: 048
     Dates: start: 20180302, end: 20180525
  5. SEREUPIN [Concomitant]
     Active Substance: PAROXETINE HYDROCHLORIDE
     Indication: PROPHYLAXIS
     Route: 048
     Dates: start: 20180413, end: 20180525
  6. PERIDON (ITALY) [Concomitant]
     Dosage: DOSE 1: TBSP (TABLESPOON DOSING UNIT)
     Route: 048
     Dates: start: 20180302, end: 20180525
  7. SERETIDE [Concomitant]
     Active Substance: FLUTICASONE PROPIONATE\SALMETEROL XINAFOATE
     Dosage: DOSE - 2 PUFF
     Route: 050
     Dates: start: 20180504, end: 20180513
  8. TRITTICO [Concomitant]
     Active Substance: TRAZODONE HYDROCHLORIDE
     Indication: ANXIETY
     Dosage: TRITTICO 60 MG
     Route: 048
     Dates: start: 20180504, end: 20180525
  9. SERETIDE [Concomitant]
     Active Substance: FLUTICASONE PROPIONATE\SALMETEROL XINAFOATE
     Dosage: DOSE - 2 PUFF
     Route: 050
     Dates: start: 20180323, end: 20180503
  10. IVOR [Concomitant]
     Active Substance: BEMIPARIN SODIUM
     Dosage: 5000 UNIT
     Route: 058
  11. ESOMEPRAZOLE. [Concomitant]
     Active Substance: ESOMEPRAZOLE MAGNESIUM
     Route: 048
     Dates: start: 20180413, end: 20180525
  12. SANCUSO [Concomitant]
     Active Substance: GRANISETRON
     Indication: PROPHYLAXIS
     Dosage: 1 : PATCH
     Route: 050
     Dates: start: 20180504, end: 20180525
  13. TORVAST [Concomitant]
     Active Substance: ATORVASTATIN
     Route: 048
  14. SERETIDE [Concomitant]
     Active Substance: FLUTICASONE PROPIONATE\SALMETEROL XINAFOATE
     Dosage: SERETIDE 50/205 : DOSE - 2 PUFF
     Route: 050
     Dates: end: 20180322
  15. SERETIDE [Concomitant]
     Active Substance: FLUTICASONE PROPIONATE\SALMETEROL XINAFOATE
     Dosage: 2 PUFFS
     Route: 050
     Dates: start: 20180514
  16. ATEZOLIZUMAB. [Suspect]
     Active Substance: ATEZOLIZUMAB
     Indication: NON-SMALL CELL LUNG CANCER METASTATIC
     Dosage: DATE OF MOST RECENT DOSE OF ATEZOLIZUMAB PRIOR TO AE ONSET : 04/MAY/2018 (10 30)?MOST RECENT DOSE OF
     Route: 042
     Dates: start: 20180302
  17. SPIRIVA RESPIMAT [Concomitant]
     Active Substance: TIOTROPIUM BROMIDE
     Route: 050

REACTIONS (2)
  - Type 2 diabetes mellitus [Recovering/Resolving]
  - Primary adrenal insufficiency [Recovering/Resolving]

NARRATIVE: CASE EVENT DATE: 20180518
